FAERS Safety Report 18918673 (Version 12)
Quarter: 2022Q3

REPORT INFORMATION
  Report Type: Spontaneous
  Country: CA (occurrence: CA)
  Receive Date: 20210220
  Receipt Date: 20220822
  Transmission Date: 20221026
  Serious: Yes (Hospitalization)
  Sender: FDA-Public Use
  Company Number: CA-CELLTRION INC.-2020CA028059

PATIENT

DRUGS (20)
  1. INFLECTRA [Suspect]
     Active Substance: INFLIXIMAB-DYYB
     Indication: Crohn^s disease
     Dosage: 260 MG, 0, 2, 6 WEEKS, EVERY 8 WEEKS (Q 0 WEEK DOSE)
     Route: 042
     Dates: start: 20200915
  2. INFLECTRA [Suspect]
     Active Substance: INFLIXIMAB-DYYB
     Dosage: 260 MG, 0, 2, 6 WEEKS, EVERY 8 WEEKS (Q 2 WEEK DOSE)
     Route: 042
     Dates: start: 20200929
  3. INFLECTRA [Suspect]
     Active Substance: INFLIXIMAB-DYYB
     Dosage: 260 MG, 0, 2, 6 WEEKS, EVERY 8 WEEKS (Q 6 WEEK DOSE)
     Route: 042
     Dates: start: 20201027
  4. INFLECTRA [Suspect]
     Active Substance: INFLIXIMAB-DYYB
     Dosage: 260 MG, 0, 2, 6 WEEKS, EVERY 8 WEEKS
     Route: 042
     Dates: start: 20201222
  5. INFLECTRA [Suspect]
     Active Substance: INFLIXIMAB-DYYB
     Dosage: 260 MG, EVERY 8 WEEKS
     Route: 042
     Dates: start: 20210302
  6. INFLECTRA [Suspect]
     Active Substance: INFLIXIMAB-DYYB
     Dosage: 260 MG, EVERY 8 WEEKS
     Route: 042
     Dates: start: 20210427
  7. INFLECTRA [Suspect]
     Active Substance: INFLIXIMAB-DYYB
     Dosage: 260 MG, EVERY 8 WEEKS
     Route: 042
     Dates: start: 20210622
  8. INFLECTRA [Suspect]
     Active Substance: INFLIXIMAB-DYYB
     Dosage: 260 MG, EVERY 8 WEEKS
     Route: 042
     Dates: start: 20210831
  9. INFLECTRA [Suspect]
     Active Substance: INFLIXIMAB-DYYB
     Dosage: 300 MG, EVERY 8 WEEKS
     Route: 042
     Dates: start: 20210831
  10. INFLECTRA [Suspect]
     Active Substance: INFLIXIMAB-DYYB
     Dosage: 300 MG, EVERY 8 WEEKS
     Route: 042
     Dates: start: 20211117
  11. INFLECTRA [Suspect]
     Active Substance: INFLIXIMAB-DYYB
     Dosage: UNK
     Route: 042
     Dates: start: 20220113
  12. INFLECTRA [Suspect]
     Active Substance: INFLIXIMAB-DYYB
     Dosage: 300 MG, EVERY 8 WEEKS
     Route: 042
     Dates: start: 20220222
  13. INFLECTRA [Suspect]
     Active Substance: INFLIXIMAB-DYYB
     Dosage: 300 MG, EVERY 8 WEEKS
     Route: 042
     Dates: start: 20220419
  14. INFLECTRA [Suspect]
     Active Substance: INFLIXIMAB-DYYB
     Dosage: 300 MG, EVERY 8 WEEKS
     Route: 042
     Dates: start: 20220614
  15. INFLECTRA [Suspect]
     Active Substance: INFLIXIMAB-DYYB
     Dosage: 300 MG, EVERY 8 WEEKS
     Route: 042
     Dates: start: 20220809
  16. FLUOXETINE [Concomitant]
     Active Substance: FLUOXETINE HYDROCHLORIDE
     Dosage: UNK
  17. FLUOXETINE [Concomitant]
     Active Substance: FLUOXETINE HYDROCHLORIDE
     Dosage: 1 DF
  18. PREDNISONE [Concomitant]
     Active Substance: PREDNISONE
     Dosage: UNK
  19. POLYETHYLENE GLYCOL 3350 [Concomitant]
     Active Substance: POLYETHYLENE GLYCOL 3350
     Dosage: UNK
  20. POLYETHYLENE GLYCOL 3350 [Concomitant]
     Active Substance: POLYETHYLENE GLYCOL 3350
     Dosage: 1 DF

REACTIONS (13)
  - Nervous system disorder [Not Recovered/Not Resolved]
  - Vision blurred [Unknown]
  - Dizziness [Unknown]
  - Off label use [Unknown]
  - Inappropriate schedule of product administration [Unknown]
  - Weight increased [Unknown]
  - Heart rate irregular [Recovered/Resolved]
  - Feeling abnormal [Unknown]
  - Aphthous ulcer [Unknown]
  - Condition aggravated [Recovering/Resolving]
  - Arthralgia [Unknown]
  - Anal fissure [Unknown]
  - Erythema nodosum [Unknown]

NARRATIVE: CASE EVENT DATE: 20201222
